FAERS Safety Report 9178786 (Version 2)
Quarter: 2016Q3

REPORT INFORMATION
  Report Type: Report from Study
  Country: GB (occurrence: GB)
  Receive Date: 20130321
  Receipt Date: 20160810
  Transmission Date: 20161109
  Serious: Yes (Other)
  Sender: FDA-Public Use
  Company Number: GB-ROCHE-1203914

PATIENT
  Sex: Female

DRUGS (2)
  1. TRASTUZUMAB [Suspect]
     Active Substance: TRASTUZUMAB
     Indication: HER-2 POSITIVE BREAST CANCER
     Dosage: THE LICENSED WEEKLY DOSE OF 2 MG/KG OVER 30 MINUTES (OR 4 MG/KG OVER 90 MINUTES IF A LOADING DOSE WA
     Route: 042
  2. INVESTIGATIONAL ANTINEOPLASTIC AGENT [Suspect]
     Active Substance: INVESTIGATIONAL PRODUCT
     Indication: HER-2 POSITIVE BREAST CANCER
     Dosage: 55 OR 70 MG/M2 IN A 28-DAY CYCLE
     Route: 042

REACTIONS (9)
  - Fatigue [Unknown]
  - Accommodation disorder [Unknown]
  - Nausea [Unknown]
  - Asthenia [Unknown]
  - Vomiting [Unknown]
  - Ejection fraction decreased [Unknown]
  - Optic nerve disorder [Unknown]
  - Diarrhoea [Unknown]
  - Visual impairment [Unknown]
